FAERS Safety Report 6390534-5 (Version None)
Quarter: 2009Q4

REPORT INFORMATION
  Report Type: 
  Country: None (occurrence: None)
  Receive Date: 20091005
  Receipt Date: 20091005
  Transmission Date: 20100525
  Serious: Yes (Hospitalization, Other)
  Sender: FDA-Public Use
  Company Number: None

PATIENT

DRUGS (3)
  1. NUPERCAINAL (NCH)(CINCHOCAINE) OINTMENT [Suspect]
     Indication: FAECES HARD
     Dosage: UNK
     Dates: start: 20060101
  2. DIAZEPAM [Concomitant]
  3. ANAFRANIL [Concomitant]

REACTIONS (17)
  - ANAL HAEMORRHAGE [None]
  - ANORECTAL DISCOMFORT [None]
  - ANORECTAL DISORDER [None]
  - ARTIFICIAL MENOPAUSE [None]
  - ENDOMETRIOSIS [None]
  - FAECES HARD [None]
  - HAEMORRHAGE [None]
  - HAIR COLOUR CHANGES [None]
  - HOT FLUSH [None]
  - INJECTION SITE DISCOLOURATION [None]
  - INJECTION SITE PAIN [None]
  - OVARIAN ADHESION [None]
  - PELVIC ADHESIONS [None]
  - PROCTALGIA [None]
  - SWELLING [None]
  - UTERINE HAEMORRHAGE [None]
  - VULVOVAGINAL DRYNESS [None]
